FAERS Safety Report 17094355 (Version 5)
Quarter: 2020Q1

REPORT INFORMATION
  Report Type: Spontaneous
  Country: JP (occurrence: JP)
  Receive Date: 20191129
  Receipt Date: 20200108
  Transmission Date: 20200409
  Serious: Yes (Hospitalization, Other)
  Sender: FDA-Public Use
  Company Number: JP-ALLERGAN-1948982US

PATIENT
  Sex: Female
  Weight: 41.1 kg

DRUGS (6)
  1. RISEDRONATE SODIUM - BP [Suspect]
     Active Substance: RISEDRONATE SODIUM
     Indication: OSTEOPOROSIS PROPHYLAXIS
     Route: 048
  2. METHOTREXATE. [Suspect]
     Active Substance: METHOTREXATE
     Indication: PRODUCT USED FOR UNKNOWN INDICATION
     Dosage: UNK
     Dates: end: 201804
  3. NORVASC [Concomitant]
     Active Substance: AMLODIPINE BESYLATE
  4. SELBEX [Concomitant]
     Active Substance: TEPRENONE
  5. TAPIZOL [Concomitant]
     Active Substance: LANSOPRAZOLE
  6. CRESTOR [Concomitant]
     Active Substance: ROSUVASTATIN CALCIUM

REACTIONS (1)
  - Osteonecrosis of jaw [Recovered/Resolved]
